FAERS Safety Report 21725198 (Version 1)
Quarter: 2022Q4

REPORT INFORMATION
  Report Type: Spontaneous
  Country: FR (occurrence: FR)
  Receive Date: 20221214
  Receipt Date: 20221214
  Transmission Date: 20230112
  Serious: Yes (Hospitalization)
  Sender: FDA-Public Use
  Company Number: None

PATIENT
  Age: 83 Year
  Sex: Female
  Weight: 80 kg

DRUGS (12)
  1. XARELTO [Interacting]
     Active Substance: RIVAROXABAN
     Indication: Cardiovascular event prophylaxis
     Dosage: 20 MG, QD
     Route: 048
     Dates: end: 20221109
  2. KARDEGIC [Interacting]
     Active Substance: ASPIRIN DL-LYSINE
     Indication: Cardiovascular event prophylaxis
     Dosage: 75 MG, QD
     Route: 048
     Dates: end: 20221109
  3. CALCIUM\CHOLECALCIFEROL [Concomitant]
     Active Substance: CALCIUM\CHOLECALCIFEROL
     Route: 048
  4. BILASTINE [Concomitant]
     Active Substance: BILASTINE
     Route: 048
  5. FEBUXOSTAT [Concomitant]
     Active Substance: FEBUXOSTAT
     Route: 048
  6. BISOPROLOL FUMARATE [Concomitant]
     Active Substance: BISOPROLOL FUMARATE
     Route: 048
     Dates: end: 202211
  7. VILDAGLIPTIN [Concomitant]
     Active Substance: VILDAGLIPTIN
     Route: 048
  8. URSODIOL [Concomitant]
     Active Substance: URSODIOL
     Route: 048
  9. TIAPRIDE [Concomitant]
     Active Substance: TIAPRIDE
     Route: 048
  10. BROMAZEPAM [Concomitant]
     Active Substance: BROMAZEPAM
     Route: 048
     Dates: end: 202211
  11. FOLIC ACID [Concomitant]
     Active Substance: FOLIC ACID
     Route: 048
  12. LEVOTHYROXINE [Concomitant]
     Active Substance: LEVOTHYROXINE
     Route: 048

REACTIONS (2)
  - Drug interaction [Recovering/Resolving]
  - Intracranial haematoma [Recovering/Resolving]

NARRATIVE: CASE EVENT DATE: 20221108
